FAERS Safety Report 4323484-6 (Version None)
Quarter: 2004Q1

REPORT INFORMATION
  Report Type: 
  Country: None (occurrence: None)
  Receive Date: 20040325
  Receipt Date: 20040316
  Transmission Date: 20041129
  Serious: Yes (Hospitalization)
  Sender: FDA-Public Use
  Company Number: PHRM2004FR01207

PATIENT
  Age: 75 Year
  Sex: Female

DRUGS (5)
  1. PARLODEL [Suspect]
     Indication: PARKINSON'S DISEASE
     Dosage: 10 MG, 5QD
     Route: 048
  2. SINEMET [Suspect]
     Indication: PARKINSON'S DISEASE
     Dosage: 1 DF, 8QD
     Route: 048
  3. XANAX [Concomitant]
     Indication: ANXIETY
     Dosage: 1 MG, BID
     Route: 048
  4. LEVOTHYROXINE SODIUM [Concomitant]
     Indication: HYPOTHYROIDISM
     Dosage: 100 UG, QD
     Route: 048
  5. LAROXYL [Concomitant]
     Indication: ANXIETY
     Dosage: 25 MG, QD
     Route: 048

REACTIONS (2)
  - DELIRIUM [None]
  - HALLUCINATION [None]
